FAERS Safety Report 5776740-9 (Version None)
Quarter: 2008Q2

REPORT INFORMATION
  Report Type: 
  Country: None (occurrence: None)
  Receive Date: 20080616
  Receipt Date: 20080605
  Transmission Date: 20081010
  Serious: Yes (Death, Other)
  Sender: FDA-Public Use
  Company Number: 2007-03403

PATIENT
  Age: 64 Year
  Sex: Female
  Weight: 45 kg

DRUGS (13)
  1. VELCADE [Suspect]
     Indication: MULTIPLE MYELOMA
     Dosage: 1.80 MG, INTRAVENOUS; 1.50 MG, INTRAVENOUS
     Route: 042
     Dates: start: 20070730, end: 20070806
  2. VELCADE [Suspect]
     Indication: MULTIPLE MYELOMA
     Dosage: 1.80 MG, INTRAVENOUS; 1.50 MG, INTRAVENOUS
     Route: 042
     Dates: start: 20070823, end: 20070903
  3. DEXAMETHASONE [Concomitant]
  4. FAMOTIDINE [Concomitant]
  5. ALLOPURINOL [Concomitant]
  6. NAIXAN (NAPROXEN SODIUM) [Concomitant]
  7. MUCOSTA (REBAMIPIDE) [Concomitant]
  8. ZOVIRAX [Concomitant]
  9. ZITHROMAX [Concomitant]
  10. MEORPEN (MEROPENEM) [Concomitant]
  11. VENOGLOBULIN [Concomitant]
  12. PROCATEROL HCL [Concomitant]
  13. BISOLVON (BROMHEXINE HYDROCHLORIDE) [Concomitant]

REACTIONS (9)
  - ANOREXIA [None]
  - ASTHMA [None]
  - BRONCHITIS [None]
  - DISEASE PROGRESSION [None]
  - HAEMOGLOBIN DECREASED [None]
  - SINUSITIS [None]
  - STOMATITIS [None]
  - THROMBOCYTOPENIA [None]
  - UPPER RESPIRATORY TRACT INFECTION BACTERIAL [None]
